FAERS Safety Report 20392159 (Version 11)
Quarter: 2022Q4

REPORT INFORMATION
  Report Type: Report from Study
  Country: US (occurrence: US)
  Receive Date: 20220128
  Receipt Date: 20221022
  Transmission Date: 20230112
  Serious: No
  Sender: FDA-Public Use
  Company Number: US-NOVARTISTESTPH-NVSC2022US018327

PATIENT
  Age: 59 Year
  Sex: Female

DRUGS (2)
  1. COSENTYX [Suspect]
     Active Substance: SECUKINUMAB
     Indication: Psoriasis
     Dosage: 300 MG, Q WEEK FOR FIVE WEEKS
     Route: 058
     Dates: start: 20211223
  2. COSENTYX [Suspect]
     Active Substance: SECUKINUMAB
     Dosage: 300 MG, QMO
     Route: 058

REACTIONS (7)
  - Psoriasis [Recovering/Resolving]
  - Rash [Not Recovered/Not Resolved]
  - Blister [Unknown]
  - Pustule [Unknown]
  - Nail psoriasis [Recovering/Resolving]
  - Skin discolouration [Unknown]
  - Dry skin [Unknown]

NARRATIVE: CASE EVENT DATE: 20220117
